FAERS Safety Report 14410617 (Version 4)
Quarter: 2018Q2

REPORT INFORMATION
  Report Type: Report from Study
  Country: RU (occurrence: RU)
  Receive Date: 20180119
  Receipt Date: 20180525
  Transmission Date: 20180711
  Serious: Yes (Hospitalization, Other)
  Sender: FDA-Public Use
  Company Number: PHHY2018RU005117

PATIENT
  Age: 46 Year
  Sex: Female

DRUGS (2)
  1. MEKINIST [Suspect]
     Active Substance: TRAMETINIB DIMETHYL SULFOXIDE
     Indication: METASTATIC MALIGNANT MELANOMA
     Dosage: 150 MG, BID
     Route: 048
     Dates: start: 20170925
  2. TAFINLAR [Suspect]
     Active Substance: DABRAFENIB MESYLATE
     Indication: METASTATIC MALIGNANT MELANOMA
     Dosage: 2 G, QD
     Route: 048
     Dates: start: 20170925

REACTIONS (19)
  - Vision blurred [Unknown]
  - Lung neoplasm malignant [Unknown]
  - Bundle branch block left [Unknown]
  - Hypertension [Unknown]
  - Sinus rhythm [Unknown]
  - White blood cell count decreased [Unknown]
  - Blindness [Unknown]
  - Metastases to central nervous system [Unknown]
  - Headache [Unknown]
  - Optic ischaemic neuropathy [Recovering/Resolving]
  - Cardiac failure congestive [Unknown]
  - Red blood cell count decreased [Unknown]
  - Visual acuity reduced [Recovered/Resolved]
  - Left ventricular hypertrophy [Unknown]
  - Blood cholesterol increased [Unknown]
  - Metastases to liver [Unknown]
  - Diplopia [Unknown]
  - Protein total increased [Unknown]
  - Pulmonary fibrosis [Unknown]

NARRATIVE: CASE EVENT DATE: 20171116
